FAERS Safety Report 4930724-9 (Version None)
Quarter: 2006Q1

REPORT INFORMATION
  Report Type: 
  Country: None (occurrence: None)
  Receive Date: 20060227
  Receipt Date: 20060214
  Transmission Date: 20060701
  Serious: Yes (Other)
  Sender: FDA-Public Use
  Company Number: 2006023967

PATIENT
  Sex: Male
  Weight: 117.9352 kg

DRUGS (15)
  1. CELEBREX [Suspect]
     Indication: ARTHRALGIA
     Dosage: ORAL
     Route: 048
  2. BEXTRA [Suspect]
     Indication: ARTHRALGIA
     Dosage: 20 MG 1 IN 1 D ORAL
     Route: 048
  3. GABAPENTIN [Suspect]
     Indication: HYPOAESTHESIA
     Dosage: 600 MG (300 MG 2 IN 1 D) ORAL
     Route: 048
  4. PREDNISONE TAB [Suspect]
     Indication: ARTHRALGIA
     Dosage: ORAL
     Route: 048
  5. ALLOPURINOL [Concomitant]
  6. LOVASTATIN [Concomitant]
  7. ATENOLOL [Concomitant]
  8. OMEPRAZOLE [Concomitant]
  9. FUROSEMIDE [Concomitant]
  10. ASPIRIN [Concomitant]
  11. MULTIVITAMIN [Concomitant]
  12. OCUVITE (ASCORBIC ACID, RETINO, TOCOPHEROL) [Concomitant]
  13. OYSTER SHELL CALCIUM (CALCIUM CARBONATE) [Concomitant]
  14. GLUCOSAMINE W/CHONDROITIN SULFATES (ASCORBIC ACID, CHONDROITIN SULFATE [Concomitant]
  15. QUININE SULFATE [Concomitant]

REACTIONS (4)
  - HAEMORRHAGE SUBCUTANEOUS [None]
  - HYPOAESTHESIA [None]
  - PARAESTHESIA [None]
  - SKIN DISCOLOURATION [None]
